FAERS Safety Report 17577795 (Version 1)
Quarter: 2020Q1

REPORT INFORMATION
  Report Type: Spontaneous
  Country: DE (occurrence: DE)
  Receive Date: 20200324
  Receipt Date: 20200324
  Transmission Date: 20200409
  Serious: Yes (Other)
  Sender: FDA-Public Use
  Company Number: DE-MYLANLABS-2020M1029751

PATIENT
  Sex: Female
  Weight: 67 kg

DRUGS (1)
  1. MONTELUKAST [Suspect]
     Active Substance: MONTELUKAST SODIUM
     Indication: ASTHMA
     Dosage: 10 MILLIGRAM
     Route: 048
     Dates: start: 201910, end: 202002

REACTIONS (14)
  - Dizziness [Unknown]
  - Suicidal ideation [Unknown]
  - Pyrexia [Unknown]
  - Irritability [Unknown]
  - Restlessness [Unknown]
  - Headache [Unknown]
  - Hyperhidrosis [Unknown]
  - Sensory disturbance [Unknown]
  - Anxiety [Unknown]
  - Depression [Unknown]
  - Indifference [Unknown]
  - Chills [Unknown]
  - Aggression [Unknown]
  - Abnormal behaviour [Unknown]

NARRATIVE: CASE EVENT DATE: 201910
